FAERS Safety Report 7965817-5 (Version None)
Quarter: 2011Q4

REPORT INFORMATION
  Report Type: 
  Country: None (occurrence: None)
  Receive Date: 20111208
  Receipt Date: 20111129
  Transmission Date: 20120403
  Serious: Yes (Life-Threatening)
  Sender: FDA-Public Use
  Company Number: IT-TEVA-311930ISR

PATIENT
  Sex: Female

DRUGS (1)
  1. ACIDO ALENDRONICO SALE SODICO [Suspect]
     Indication: OSTEOPOROSIS POSTMENOPAUSAL
     Dosage: 10 MILLIGRAM;
     Route: 048
     Dates: start: 20101028, end: 20111026

REACTIONS (1)
  - OESOPHAGITIS HAEMORRHAGIC [None]
